FAERS Safety Report 8139042-1 (Version None)
Quarter: 2012Q1

REPORT INFORMATION
  Report Type: 
  Country: None (occurrence: None)
  Receive Date: 20120215
  Receipt Date: 20120206
  Transmission Date: 20120608
  Serious: Yes (Other)
  Sender: FDA-Public Use
  Company Number: CA-B.I. PHARMACEUTICALS,INC./RIDGEFIELD-2012-CN-00180CN

PATIENT
  Age: 53 Year
  Sex: Male

DRUGS (13)
  1. TIPRANAVIR + RITONAVIR CO-ADMIN [Suspect]
  2. HYDROXYZINE [Concomitant]
  3. NYSTATIN [Concomitant]
  4. ZITHROMAX [Concomitant]
  5. LORAZEPAM [Concomitant]
  6. RESCRIPTOR [Concomitant]
  7. MEPRON [Concomitant]
     Route: 048
  8. DIDANOSINE [Concomitant]
  9. FUZEON [Concomitant]
     Route: 058
  10. NEXIUM [Concomitant]
  11. SPORANOX [Concomitant]
  12. NORVIR [Suspect]
     Dosage: 1 RT
     Route: 048
  13. VIREAD [Concomitant]

REACTIONS (2)
  - PSYCHOTIC DISORDER [None]
  - JUDGEMENT IMPAIRED [None]
